FAERS Safety Report 17986700 (Version 2)
Quarter: 2020Q3

REPORT INFORMATION
  Report Type: Spontaneous
  Country: JP (occurrence: JP)
  Receive Date: 20200707
  Receipt Date: 20200708
  Transmission Date: 20201103
  Serious: Yes (Hospitalization)
  Sender: FDA-Public Use
  Company Number: JP-ROCHE-2635903

PATIENT
  Age: 49 Year
  Sex: Male

DRUGS (5)
  1. OXALIPLATIN. [Concomitant]
     Active Substance: OXALIPLATIN
     Indication: RECTOSIGMOID CANCER
     Dosage: UNCERTAIN DOSAGE FOR 5 COURSES
     Route: 041
  2. XELODA [Suspect]
     Active Substance: CAPECITABINE
     Indication: RECTOSIGMOID CANCER
     Dosage: UNCERTAIN DOSAGE FOR 5 COURSES
     Route: 048
  3. XELODA [Suspect]
     Active Substance: CAPECITABINE
     Dosage: DOSAGE IS UNCERTAIN.
     Route: 048
  4. AVASTIN [Suspect]
     Active Substance: BEVACIZUMAB
     Indication: RECTOSIGMOID CANCER
     Dosage: UNCERTAIN DOSAGE FOR 5 COURSES
     Route: 041
  5. OXALIPLATIN. [Concomitant]
     Active Substance: OXALIPLATIN
     Dosage: DOSAGE IS UNCERTAIN.
     Route: 041

REACTIONS (3)
  - Pituitary tumour benign [Unknown]
  - Venous thrombosis [Unknown]
  - Tumour haemorrhage [Unknown]
